FAERS Safety Report 8841099 (Version 1)
Quarter: 2012Q4

REPORT INFORMATION
  Report Type: 
  Country: US (occurrence: US)
  Receive Date: 20121015
  Receipt Date: 20121015
  Transmission Date: 20130627
  Serious: Yes (Disabling, Other)
  Sender: FDA-Public Use
  Company Number: US-ELI_LILLY_AND_COMPANY-US201207008304

PATIENT
  Sex: Female
  Weight: 81.63 kg

DRUGS (4)
  1. CYMBALTA [Suspect]
     Indication: DIABETIC NEUROPATHY
     Dosage: 90 mg, qam
     Route: 048
     Dates: start: 20101203, end: 20120223
  2. CYMBALTA [Suspect]
     Dosage: 60 mg, qam x 7 days
  3. CYMBALTA [Suspect]
     Dosage: 30 mg, qam x 7 days
  4. VYVANSE [Concomitant]
     Indication: PAIN
     Dosage: 70 mg, UNK
     Dates: start: 20101203, end: 20120223

REACTIONS (4)
  - Scar [Not Recovered/Not Resolved]
  - Skin lesion [Unknown]
  - Self esteem decreased [Not Recovered/Not Resolved]
  - Depression [Not Recovered/Not Resolved]
